FAERS Safety Report 9513506 (Version 1)
Quarter: 2013Q3

REPORT INFORMATION
  Report Type: Spontaneous
  Country: US (occurrence: US)
  Receive Date: 20130910
  Receipt Date: 20130910
  Transmission Date: 20140515
  Serious: No
  Sender: FDA-Public Use
  Company Number: US-TARO-2013P1008234

PATIENT
  Age: 83 Year
  Sex: Female
  Weight: 66.77 kg

DRUGS (12)
  1. WARFARIN SODIUM TABLETS USP 4MG [Suspect]
     Route: 048
     Dates: start: 2003, end: 201306
  2. WARFARIN SODIUM TABLETS USP 4MG [Suspect]
     Route: 048
     Dates: start: 2003, end: 201306
  3. WARFARIN SODIUM TABLETS USP 4MG [Suspect]
     Route: 048
     Dates: start: 201306
  4. WARFARIN SODIUM TABLETS USP 4MG [Suspect]
     Route: 048
     Dates: start: 201306
  5. LEVOTHYROXINE [Concomitant]
  6. FUROSEMIDE [Concomitant]
  7. FUROSEMIDE [Concomitant]
  8. KLOR-CON [Concomitant]
  9. NAMENDA [Concomitant]
  10. DONEPEZIL [Concomitant]
  11. CARVEDILOL [Concomitant]
  12. LISINOPRIL [Concomitant]

REACTIONS (3)
  - Contusion [Recovering/Resolving]
  - International normalised ratio increased [Unknown]
  - Weight increased [Recovering/Resolving]
